FAERS Safety Report 8898286 (Version 1)
Quarter: 2012Q4

REPORT INFORMATION
  Report Type: 
  Country: US (occurrence: US)
  Receive Date: 20121108
  Receipt Date: 20121108
  Transmission Date: 20130627
  Serious: No
  Sender: FDA-Public Use
  Company Number: US-AMGEN-USASP2012034329

PATIENT
  Age: 41 Year
  Sex: Male

DRUGS (6)
  1. ENBREL [Suspect]
     Indication: PRODUCT USED FOR UNKNOWN INDICATION
     Dosage: 50 mg, qwk
     Route: 058
  2. METHOTREXATE [Concomitant]
     Dosage: 2.5 mg, UNK
  3. CITALOPRAM [Concomitant]
     Dosage: 10 mg, UNK
  4. FISH OIL [Concomitant]
     Dosage: UNK
  5. TRIPLE FLEX [Concomitant]
     Dosage: UNK
  6. FOLIC ACID [Concomitant]

REACTIONS (2)
  - Chromaturia [Unknown]
  - Urine odour abnormal [Unknown]
